FAERS Safety Report 24145696 (Version 4)
Quarter: 2024Q4

REPORT INFORMATION
  Report Type: Report from Study
  Country: US (occurrence: US)
  Receive Date: 20240729
  Receipt Date: 20241006
  Transmission Date: 20250115
  Serious: Yes (Other)
  Sender: ABBVIE
  Company Number: US-ABBVIE-5855585

PATIENT
  Age: 70 Year
  Sex: Female
  Weight: 68 kg

DRUGS (4)
  1. SKYRIZI [Suspect]
     Active Substance: RISANKIZUMAB-RZAA
     Indication: Crohn^s disease
     Dosage: FORM STRENGTH 360 MILLIGRAM
     Route: 058
     Dates: start: 202309
  2. SKYRIZI [Suspect]
     Active Substance: RISANKIZUMAB-RZAA
     Indication: Crohn^s disease
     Dosage: FORM STRENGTH: 600 MILLIGRAM,  FREQUENCY: 1, FREQUENCY TIME: 1, FREQUENCY UNITS: ONCE
     Route: 042
     Dates: start: 20230612, end: 20230612
  3. SKYRIZI [Suspect]
     Active Substance: RISANKIZUMAB-RZAA
     Indication: Crohn^s disease
     Dosage: FORM STRENGTH: 600 MILLIGRAM, FREQUENCY: 1, FREQUENCY TIME: 1, FREQUENCY UNITS: ONCE
     Route: 041
     Dates: start: 20230710, end: 20230710
  4. SKYRIZI [Suspect]
     Active Substance: RISANKIZUMAB-RZAA
     Indication: Crohn^s disease
     Dosage: FORM STRENGTH: 600 MILLIGRAM, FREQUENCY: 1, FREQUENCY TIME: 1, FREQUENCY UNITS: ONCE
     Route: 042
     Dates: start: 20230808, end: 20230808

REACTIONS (4)
  - Breast cancer female [Recovering/Resolving]
  - Brain fog [Recovered/Resolved]
  - Crohn^s disease [Recovered/Resolved]
  - Influenza [Recovered/Resolved]

NARRATIVE: CASE EVENT DATE: 20240502
